FAERS Safety Report 18350390 (Version 1)
Quarter: 2020Q4

REPORT INFORMATION
  Report Type: Spontaneous
  Country: US (occurrence: US)
  Receive Date: 20201006
  Receipt Date: 20201006
  Transmission Date: 20210114
  Serious: Yes (Death, Disabling, Other)
  Sender: FDA-Public Use
  Company Number: US-PURDUE-USA-2020-0158728

PATIENT
  Sex: Male
  Weight: 112.2 kg

DRUGS (9)
  1. OXYCODONE HYDROCHLORIDE (SIMILAR TO NDA 22-272) [Suspect]
     Active Substance: OXYCODONE HYDROCHLORIDE
     Indication: PRODUCT USED FOR UNKNOWN INDICATION
     Dosage: UNK
     Route: 048
  2. ADVIL [Suspect]
     Active Substance: IBUPROFEN
     Indication: PRODUCT USED FOR UNKNOWN INDICATION
     Dosage: UNK
     Route: 065
  3. PROMETHAZINE HYDROCHLORIDE. [Concomitant]
     Active Substance: PROMETHAZINE HYDROCHLORIDE
     Indication: NAUSEA
     Dosage: 25 MG, Q6H
     Route: 048
  4. OXYCONTIN [Suspect]
     Active Substance: OXYCODONE HYDROCHLORIDE
     Indication: PRODUCT USED FOR UNKNOWN INDICATION
     Dosage: UNK
     Route: 048
  5. OXYCODONE/ ACETAMINOPHEN TABLETS [Suspect]
     Active Substance: ACETAMINOPHEN\OXYCODONE HYDROCHLORIDE
     Indication: PAIN
     Dosage: UNK UNK, Q6H
     Route: 048
  6. AMPHETAMINE [Suspect]
     Active Substance: AMPHETAMINE
     Indication: PRODUCT USED FOR UNKNOWN INDICATION
     Dosage: 5 MG, DAILY
     Route: 048
  7. OXYCONTIN [Suspect]
     Active Substance: OXYCODONE HYDROCHLORIDE
     Dosage: 800 MG, DAILY
     Route: 048
  8. DILAUDID [Suspect]
     Active Substance: HYDROMORPHONE HYDROCHLORIDE
     Dosage: UNK
     Route: 065
  9. ZOLPIDEM [Suspect]
     Active Substance: ZOLPIDEM TARTRATE
     Indication: PRODUCT USED FOR UNKNOWN INDICATION
     Dosage: UNK
     Route: 065

REACTIONS (31)
  - Back pain [Unknown]
  - Disability [Unknown]
  - Gout [Unknown]
  - Large intestine polyp [Unknown]
  - Major depression [Unknown]
  - Vomiting [Unknown]
  - Facial pain [Unknown]
  - Asthma [Unknown]
  - Spinal osteoarthritis [Unknown]
  - Scoliosis [Unknown]
  - Colonoscopy abnormal [Unknown]
  - Oesophageal stenosis [Unknown]
  - Chronic obstructive pulmonary disease [Unknown]
  - Obesity [Unknown]
  - Hypertension [Unknown]
  - Depression [Unknown]
  - Post herpetic neuralgia [Unknown]
  - Vertebral foraminal stenosis [Unknown]
  - Drug dependence [Unknown]
  - Anxiety [Unknown]
  - Trigeminal neuralgia [Unknown]
  - Drug abuse [Fatal]
  - Intestinal obstruction [Unknown]
  - Pain [Unknown]
  - Attention deficit hyperactivity disorder [Unknown]
  - Myofascial pain syndrome [Unknown]
  - Arthralgia [Unknown]
  - Unevaluable event [Unknown]
  - Sleep apnoea syndrome [Unknown]
  - Gastrooesophageal reflux disease [Unknown]
  - Impaired fasting glucose [Unknown]
